FAERS Safety Report 7135560-3 (Version None)
Quarter: 2010Q4

REPORT INFORMATION
  Report Type: 
  Country: None (occurrence: None)
  Receive Date: 20101203
  Receipt Date: 20100722
  Transmission Date: 20110411
  Serious: No
  Sender: FDA-Public Use
  Company Number: US-BRISTOL-MYERS SQUIBB COMPANY-15205628

PATIENT
  Sex: Male

DRUGS (1)
  1. KENALOG [Suspect]
     Indication: BACK PAIN
     Dosage: 9 INFUSIONS

REACTIONS (2)
  - MUSCLE ATROPHY [None]
  - WEIGHT INCREASED [None]
